FAERS Safety Report 7327015-8 (Version None)
Quarter: 2011Q1

REPORT INFORMATION
  Report Type: 
  Country: None (occurrence: None)
  Receive Date: 20110302
  Receipt Date: 20110218
  Transmission Date: 20110831
  Serious: Yes (Life-Threatening, Hospitalization)
  Sender: FDA-Public Use
  Company Number: US-GILEAD-2011-0036217

PATIENT
  Sex: Male
  Weight: 59.928 kg

DRUGS (23)
  1. CAYSTON [Suspect]
     Indication: PRODUCT USED FOR UNKNOWN INDICATION
     Route: 055
     Dates: start: 20110207, end: 20110207
  2. DUONEB [Concomitant]
     Indication: CHRONIC OBSTRUCTIVE PULMONARY DISEASE
  3. ZITHROMAX [Concomitant]
  4. MULTI-VITAMIN [Concomitant]
  5. HYPERTONIC NEBS [Concomitant]
  6. ALBUTEROL [Concomitant]
  7. RANITIDINE HCL [Concomitant]
  8. PANCREASE MT 20 [Concomitant]
  9. CALCIUM CARBONATE [Concomitant]
  10. ASPIRIN [Concomitant]
  11. DUONEB [Concomitant]
     Indication: BRONCHOSPASM
  12. CALCIUM-D [Concomitant]
  13. COMBIVENT [Concomitant]
     Indication: CHRONIC OBSTRUCTIVE PULMONARY DISEASE
  14. COMBIVENT [Concomitant]
     Indication: BRONCHOSPASM
  15. LISINOPRIL [Concomitant]
  16. ASCORBIC ACID [Concomitant]
  17. OXYGEN [Concomitant]
  18. NOVOLOG [Concomitant]
  19. SINGULAIR [Concomitant]
  20. ADVAIR DISKUS 100/50 [Concomitant]
  21. ZOCOR [Concomitant]
  22. PEPCID [Concomitant]
  23. FOLIC ACID [Concomitant]

REACTIONS (3)
  - CHEST PAIN [None]
  - BRONCHOSPASM [None]
  - TROPONIN INCREASED [None]
